FAERS Safety Report 19163607 (Version 1)
Quarter: 2021Q2

REPORT INFORMATION
  Report Type: Spontaneous
  Country: US (occurrence: US)
  Receive Date: 20210421
  Receipt Date: 20210421
  Transmission Date: 20210717
  Serious: Yes (Hospitalization, Other)
  Sender: FDA-Public Use
  Company Number: US-ACCORD-222934

PATIENT
  Age: 12 Year
  Sex: Female

DRUGS (1)
  1. AMLODIPINE [Suspect]
     Active Substance: AMLODIPINE BESYLATE
     Dosage: 16 PILLS WERE FOUND MISSING FROM PATIENT^S MOTHER BOTTLE OF PRESCRIBED AMLODIPINE

REACTIONS (11)
  - Acute kidney injury [Recovered/Resolved]
  - Intentional overdose [Unknown]
  - Hypotension [Recovered/Resolved]
  - Suicide attempt [Unknown]
  - Syncope [Recovered/Resolved]
  - Tachycardia [Recovered/Resolved]
  - Acidosis [Recovered/Resolved]
  - Toxicity to various agents [Unknown]
  - Hyperglycaemia [Recovered/Resolved]
  - Leukocytosis [Recovered/Resolved]
  - Shock [Recovered/Resolved]
